FAERS Safety Report 16288803 (Version 1)
Quarter: 2019Q2

REPORT INFORMATION
  Report Type: Spontaneous
  Country: US (occurrence: US)
  Receive Date: 20190402
  Receipt Date: 20190402
  Transmission Date: 20190711
  Serious: Yes (Hospitalization)
  Sender: FDA-Public Use
  Company Number: None

PATIENT
  Age: 35 Year
  Sex: Female
  Weight: 136.9 kg

DRUGS (9)
  1. OXYCODONE [Concomitant]
     Active Substance: OXYCODONE
  2. FLUCONAZOLE. [Concomitant]
     Active Substance: FLUCONAZOLE
  3. ALEVE [Concomitant]
     Active Substance: NAPROXEN SODIUM
  4. AMOXICILLIN. [Concomitant]
     Active Substance: AMOXICILLIN
  5. LENALIDOMIDE (CC-5013) [Suspect]
     Active Substance: LENALIDOMIDE
     Dates: end: 20190218
  6. PERIDEX MOUTH WASH [Concomitant]
  7. CYMBALTA [Concomitant]
     Active Substance: DULOXETINE HYDROCHLORIDE
  8. ALBIGLUTIDE [Concomitant]
     Active Substance: ALBIGLUTIDE
  9. MORPHINE [Concomitant]
     Active Substance: MORPHINE

REACTIONS (3)
  - Obstructive airways disorder [None]
  - Haematoma [None]
  - Localised oedema [None]

NARRATIVE: CASE EVENT DATE: 20190318
